FAERS Safety Report 6060402-7 (Version None)
Quarter: 2009Q1

REPORT INFORMATION
  Report Type: 
  Country: None (occurrence: None)
  Receive Date: 20090129
  Receipt Date: 20090129
  Transmission Date: 20090719
  Serious: Yes (Hospitalization)
  Sender: FDA-Public Use
  Company Number: None

PATIENT
  Age: 29 Year
  Sex: Male
  Weight: 78.02 kg

DRUGS (1)
  1. ACETAMINOPHEN [Suspect]
     Dosage: 45 TAB ONCE PO
     Route: 048

REACTIONS (10)
  - AGITATION [None]
  - DRUG LEVEL INCREASED [None]
  - FEAR [None]
  - HEPATOTOXICITY [None]
  - INCORRECT DOSE ADMINISTERED [None]
  - INSOMNIA [None]
  - INTENTIONAL SELF-INJURY [None]
  - LIVER FUNCTION TEST ABNORMAL [None]
  - PARANOIA [None]
  - SUICIDE ATTEMPT [None]
